FAERS Safety Report 9626593 (Version 1)
Quarter: 2013Q4

REPORT INFORMATION
  Report Type: Spontaneous
  Country: US (occurrence: US)
  Receive Date: 20131016
  Receipt Date: 20131016
  Transmission Date: 20140711
  Serious: Yes (Other)
  Sender: FDA-Public Use
  Company Number: US-009507513-1310USA003375

PATIENT
  Age: 61 Year
  Sex: Female
  Weight: 117.91 kg

DRUGS (8)
  1. DULERA [Suspect]
     Indication: DIAPHRAGMATIC PARALYSIS
     Dosage: 2 PUFFS, TWICE DAILY
     Route: 055
     Dates: start: 2010
  2. DULERA [Suspect]
     Indication: ASTHMA
     Dosage: 2 PUFFS, TWICE DAILY
     Route: 055
  3. DULERA [Suspect]
     Indication: EMPHYSEMA
  4. ALBUTEROL SULFATE [Suspect]
     Dosage: UNK
     Dates: start: 2013, end: 2013
  5. ATENOLOL [Concomitant]
     Indication: HYPERTENSION
  6. LOSARTAN POTASSIUM [Concomitant]
     Indication: HYPERTENSION
  7. ATORVASTATIN [Concomitant]
     Indication: BLOOD CHOLESTEROL INCREASED
  8. METFORMIN [Concomitant]
     Indication: DIABETES MELLITUS
     Dosage: UNK

REACTIONS (10)
  - Myocardial infarction [Recovered/Resolved]
  - Cerebrovascular accident [Recovered/Resolved]
  - Drug ineffective [Unknown]
  - Product quality issue [Unknown]
  - Underdose [Unknown]
  - Carotid artery occlusion [Unknown]
  - Oxygen saturation decreased [Unknown]
  - Oxygen saturation decreased [Unknown]
  - Wheezing [Recovered/Resolved]
  - Wheezing [Not Recovered/Not Resolved]
